FAERS Safety Report 25222947 (Version 4)
Quarter: 2025Q3

REPORT INFORMATION
  Report Type: Spontaneous
  Country: JP (occurrence: JP)
  Receive Date: 20250422
  Receipt Date: 20250929
  Transmission Date: 20251021
  Serious: Yes (Death, Other)
  Sender: VIIV
  Company Number: JP-VIIV HEALTHCARE-JP2025JPN046819

PATIENT
  Sex: Male

DRUGS (1)
  1. VOCABRIA [Suspect]
     Active Substance: CABOTEGRAVIR SODIUM
     Indication: HIV infection

REACTIONS (3)
  - Sudden death [Fatal]
  - Neoplasm malignant [Unknown]
  - Dysphagia [Unknown]

NARRATIVE: CASE EVENT DATE: 20250401
